FAERS Safety Report 9648293 (Version 2)
Quarter: 2013Q4

REPORT INFORMATION
  Report Type: Report from Study
  Country: DE (occurrence: DE)
  Receive Date: 20131028
  Receipt Date: 20131030
  Transmission Date: 20140711
  Serious: Yes (Hospitalization)
  Sender: FDA-Public Use
  Company Number: DE-UCBSA-101130

PATIENT
  Age: 55 Year
  Sex: Male

DRUGS (10)
  1. VIMPAT [Suspect]
     Indication: EPILEPSY
     Route: 048
     Dates: start: 20130530
  2. VIMPAT [Suspect]
     Indication: EPILEPSY
     Dosage: TITRATED TO 400 MG/D
     Dates: start: 201309, end: 201309
  3. VALPROATE [Suspect]
     Indication: EPILEPSY
     Dosage: DOSE PER INTAKE-1300 TWICE DAILY, TDD-2600
     Route: 048
     Dates: start: 2004
  4. HYDROCHLOROTHIAZIDE [Concomitant]
     Indication: HYPERTENSION
     Route: 048
     Dates: start: 20130920, end: 2013
  5. VALSARTAN [Concomitant]
     Indication: HYPERTENSION
     Route: 048
     Dates: start: 20130920
  6. PREZISTA [Concomitant]
     Indication: HIV INFECTION
     Dosage: DOSE: 400 MG 2 IN THE MORNING AND 1 IN THE EVENING
     Route: 048
  7. ISENTRESS [Concomitant]
     Indication: HIV INFECTION
     Dosage: DOSE PER INTAKE-400, BID, 800
     Route: 048
  8. ISENTRESS [Concomitant]
     Indication: HIV INFECTION
  9. NORVIR [Concomitant]
     Indication: HIV INFECTION
     Route: 048
  10. NORVIR [Concomitant]
     Indication: HIV INFECTION

REACTIONS (2)
  - Epilepsy [Recovered/Resolved with Sequelae]
  - Palpitations [Recovered/Resolved with Sequelae]
